FAERS Safety Report 7674226-8 (Version None)
Quarter: 2011Q3

REPORT INFORMATION
  Report Type: 
  Country: None (occurrence: None)
  Receive Date: 20110810
  Receipt Date: 20110801
  Transmission Date: 20111222
  Serious: Yes (Hospitalization, Other)
  Sender: FDA-Public Use
  Company Number: US-ELI_LILLY_AND_COMPANY-US200910004691

PATIENT
  Age: 46 Year
  Sex: Female

DRUGS (2)
  1. METFORMIN HCL [Concomitant]
  2. BYETTA [Suspect]
     Dosage: UNK, UNKNOWN
     Route: 065
     Dates: start: 20050901, end: 20060101

REACTIONS (2)
  - PANCREATITIS NECROTISING [None]
  - PANCREATITIS ACUTE [None]
